FAERS Safety Report 6464428-0 (Version None)
Quarter: 2009Q4

REPORT INFORMATION
  Report Type: 
  Country: None (occurrence: None)
  Receive Date: 20091118
  Receipt Date: 20090727
  Transmission Date: 20100525
  Serious: Yes (Hospitalization)
  Sender: FDA-Public Use
  Company Number: 2008BI022472

PATIENT
  Age: 60 Year
  Sex: Female

DRUGS (10)
  1. TYSABRI [Suspect]
     Indication: MULTIPLE SCLEROSIS
     Dosage: 300 MG;QM;IV
     Route: 042
     Dates: start: 20071212
  2. NITROFURANTOIN [Concomitant]
  3. AMYTRIPTYLINE [Concomitant]
  4. BETAMETHASONE [Concomitant]
  5. CREAM [Concomitant]
  6. METOPROLOL [Concomitant]
  7. NIFEREX [Concomitant]
  8. NEXIUM [Concomitant]
  9. XANAX [Concomitant]
  10. OXYBUTYNIN CHLORIDE [Concomitant]

REACTIONS (2)
  - HYPOKALAEMIA [None]
  - PNEUMONIA [None]
